FAERS Safety Report 13918036 (Version 1)
Quarter: 2017Q3

REPORT INFORMATION
  Report Type: Other
  Country: GB (occurrence: GB)
  Receive Date: 20170829
  Receipt Date: 20170829
  Transmission Date: 20171127
  Serious: Yes (Hospitalization, Other)
  Sender: FDA-Public Use
  Company Number: GB-GE HEALTHCARE LIFE SCIENCES-2017CSU002681

PATIENT

DRUGS (1)
  1. OMNIPAQUE [Suspect]
     Active Substance: IOHEXOL
     Indication: RECTAL CANCER
     Dosage: 300 ML, SINGLE
     Route: 042

REACTIONS (3)
  - Hypotension [Unknown]
  - Malaise [Unknown]
  - Cough [Recovering/Resolving]
